FAERS Safety Report 4806660-5 (Version None)
Quarter: 2005Q4

REPORT INFORMATION
  Report Type: 
  Country: None (occurrence: None)
  Receive Date: 20051019
  Receipt Date: 20051003
  Transmission Date: 20060501
  Serious: Yes (Other)
  Sender: FDA-Public Use
  Company Number: US95121531A

PATIENT
  Age: 71 Year
  Sex: Female

DRUGS (9)
  1. PROZAC [Suspect]
     Indication: DEPRESSION
     Dosage: 40 MG/ 1 DAY
  2. PROZAC [Suspect]
     Indication: PANIC DISORDER
     Dosage: 40 MG/ 1 DAY
  3. XANAX [Concomitant]
  4. ESTROGENS [Concomitant]
  5. PROVERA [Concomitant]
  6. ATRAXIN (MEPROBAMATE) [Concomitant]
  7. AVAPRO [Concomitant]
  8. ZETIA [Concomitant]
  9. ASPIRIN [Concomitant]

REACTIONS (14)
  - ANXIETY [None]
  - ASTHENIA [None]
  - DECREASED INTEREST [None]
  - DEPRESSION [None]
  - DRUG INEFFECTIVE [None]
  - DRY MOUTH [None]
  - FALL [None]
  - FEELING ABNORMAL [None]
  - HEADACHE [None]
  - HYPERHIDROSIS [None]
  - LETHARGY [None]
  - PALPITATIONS [None]
  - STRESS [None]
  - SYNCOPE [None]
